FAERS Safety Report 11362070 (Version 1)
Quarter: 2015Q3

REPORT INFORMATION
  Report Type: Spontaneous
  Country: FR (occurrence: FR)
  Receive Date: 20150810
  Receipt Date: 20150810
  Transmission Date: 20151125
  Serious: Yes (Disabling)
  Sender: FDA-Public Use
  Company Number: FR-JNJFOC-20150802580

PATIENT
  Age: 49 Year
  Sex: Female

DRUGS (2)
  1. IMBRUVICA [Suspect]
     Active Substance: IBRUTINIB
     Indication: CHRONIC LYMPHOCYTIC LEUKAEMIA
     Route: 048
     Dates: start: 20150626
  2. HARPAGOPHYTUM PROCUMBENS [Concomitant]

REACTIONS (2)
  - Joint lock [Unknown]
  - Arthralgia [Unknown]

NARRATIVE: CASE EVENT DATE: 20150626
